FAERS Safety Report 4645955-5 (Version None)
Quarter: 2005Q2

REPORT INFORMATION
  Report Type: 
  Country: None (occurrence: None)
  Receive Date: 20050425
  Receipt Date: 20050413
  Transmission Date: 20051028
  Serious: Yes (Other)
  Sender: FDA-Public Use
  Company Number: 200511574BCC

PATIENT
  Age: 62 Year
  Sex: Female
  Weight: 56.246 kg

DRUGS (7)
  1. MILK OF MAGNESIA TAB [Suspect]
     Indication: OBSTRUCTION
     Dosage: SEE IMAGE
     Route: 048
     Dates: start: 19700101
  2. MILK OF MAGNESIA TAB [Suspect]
     Indication: PROPHYLAXIS
     Dosage: SEE IMAGE
     Route: 048
     Dates: start: 19700101
  3. MILK OF MAGNESIA TAB [Suspect]
     Indication: OBSTRUCTION
     Dosage: SEE IMAGE
     Route: 048
     Dates: start: 19960101
  4. MILK OF MAGNESIA TAB [Suspect]
     Indication: PROPHYLAXIS
     Dosage: SEE IMAGE
     Route: 048
     Dates: start: 19960101
  5. MILK OF MAGNESIA TAB [Suspect]
     Indication: OBSTRUCTION
     Dosage: SEE IMAGE
     Route: 048
     Dates: start: 20030101
  6. MILK OF MAGNESIA TAB [Suspect]
     Indication: PROPHYLAXIS
     Dosage: SEE IMAGE
     Route: 048
     Dates: start: 20030101
  7. MINERAL OIL [Concomitant]

REACTIONS (9)
  - ABDOMINAL DISTENSION [None]
  - ANAL ABSCESS [None]
  - ANAL FISTULA [None]
  - DRUG INEFFECTIVE [None]
  - FAECES PALE [None]
  - HYSTERECTOMY [None]
  - INTESTINAL OBSTRUCTION [None]
  - ROAD TRAFFIC ACCIDENT [None]
  - UTERINE DILATION AND CURETTAGE [None]
